FAERS Safety Report 22228607 (Version 1)
Quarter: 2023Q2

REPORT INFORMATION
  Report Type: Spontaneous
  Country: GB (occurrence: GB)
  Receive Date: 20230419
  Receipt Date: 20230419
  Transmission Date: 20230721
  Serious: Yes (Other)
  Sender: FDA-Public Use
  Company Number: None

PATIENT
  Age: 15 Year
  Sex: Male
  Weight: 75 kg

DRUGS (8)
  1. CONCERTA [Suspect]
     Active Substance: METHYLPHENIDATE HYDROCHLORIDE
     Indication: Attention deficit hyperactivity disorder
     Route: 066
     Dates: start: 20230325
  2. ATENOLOL [Concomitant]
     Active Substance: ATENOLOL
     Dates: start: 20230306, end: 20230309
  3. MELATONIN [Concomitant]
     Active Substance: MELATONIN
     Dosage: ONE TO THREE AT NIGHT, ONE TO TWO H....
     Dates: start: 20230327
  4. MICONAZOLE [Concomitant]
     Active Substance: MICONAZOLE
     Dates: start: 20230327
  5. MOMETASONE [Concomitant]
     Active Substance: MOMETASONE
     Dosage: SPRAY INTO EACH NOSTRIL
     Dates: start: 20230203, end: 20230303
  6. PROPRANOLOL [Concomitant]
     Active Substance: PROPRANOLOL HYDROCHLORIDE
     Dates: start: 20230113
  7. TEMAZEPAM [Concomitant]
     Active Substance: TEMAZEPAM
     Dosage: TAKE 5-10MG AT NIGHT
     Dates: start: 20230213, end: 20230313
  8. ZOPICLONE [Concomitant]
     Active Substance: ZOPICLONE
     Dosage: AT NIGHT
     Dates: start: 20230222

REACTIONS (1)
  - Substance-induced psychotic disorder [Recovered/Resolved]

NARRATIVE: CASE EVENT DATE: 20230327
